FAERS Safety Report 9883558 (Version 1)
Quarter: 2014Q1

REPORT INFORMATION
  Report Type: Report from Study
  Country: GB (occurrence: GB)
  Receive Date: 20140210
  Receipt Date: 20140210
  Transmission Date: 20141002
  Serious: Yes (Other)
  Sender: FDA-Public Use
  Company Number: GB-AMGEN-GBRCT2014008545

PATIENT
  Age: 76 Year
  Sex: Female
  Weight: 82.5 kg

DRUGS (7)
  1. ETANERCEPT [Suspect]
     Indication: PRODUCT USED FOR UNKNOWN INDICATION
     Dosage: 50 MG, WEEKLY
     Route: 065
     Dates: start: 20130703
  2. CLOPIDOGREL [Concomitant]
     Dosage: UNK
     Dates: start: 20120306
  3. TAMSULOSIN HYDROCHLORIDE [Concomitant]
     Dosage: UNK
     Dates: start: 20071004
  4. FOLIC ACID [Concomitant]
     Dosage: UNK
     Dates: start: 20071004
  5. SITAGLIPTIN [Concomitant]
     Dosage: UNK
     Dates: start: 20130101
  6. BISOPROLOL [Concomitant]
     Dosage: UNK
     Dates: start: 20080101
  7. SIMVASTATIN [Concomitant]
     Dosage: UNK
     Dates: start: 20101129

REACTIONS (1)
  - Basal cell carcinoma [Recovered/Resolved]
